FAERS Safety Report 6270543-7 (Version None)
Quarter: 2009Q3

REPORT INFORMATION
  Report Type: 
  Country: None (occurrence: None)
  Receive Date: 20090716
  Receipt Date: 20090707
  Transmission Date: 20100115
  Serious: Yes (Death)
  Sender: FDA-Public Use
  Company Number: BE-PFIZER INC-2008082921

PATIENT
  Age: 79 Year

DRUGS (11)
  1. BLINDED *NO SUBJECT DRUG [Suspect]
     Indication: NEUROENDOCRINE TUMOUR
     Dosage: 37.5 MG, 1X/DAY
     Route: 048
     Dates: start: 20080826, end: 20080920
  2. BLINDED *PLACEBO [Suspect]
     Indication: NEUROENDOCRINE TUMOUR
     Dosage: 37.5 MG, 1X/DAY
     Route: 048
     Dates: start: 20080826, end: 20080920
  3. BLINDED SUNITINIB MALATE [Suspect]
     Indication: NEUROENDOCRINE TUMOUR
     Dosage: 37.5 MG, 1X/DAY
     Route: 048
     Dates: start: 20080826, end: 20080920
  4. CO-DERGOCRINE MESILATE [Concomitant]
     Dates: start: 19940101
  5. LANSOPRAZOLE [Concomitant]
     Dates: start: 20060101
  6. ALPRAZOLAM [Concomitant]
     Dates: start: 20060101
  7. FENOFIBRATE [Concomitant]
     Dates: start: 20030101
  8. SOMATULINA [Concomitant]
     Dates: start: 20060101
  9. PARACETAMOL [Concomitant]
     Dates: start: 20080717
  10. LOPERAMIDE HYDROCHLORIDE [Concomitant]
     Dates: start: 20080910
  11. METOCLOPRAMIDE [Concomitant]
     Dates: start: 20080910

REACTIONS (1)
  - DEHYDRATION [None]
